FAERS Safety Report 5739516-4 (Version None)
Quarter: 2008Q2

REPORT INFORMATION
  Report Type: 
  Country: None (occurrence: None)
  Receive Date: 20080515
  Receipt Date: 20080513
  Transmission Date: 20081010
  Serious: Yes (Other)
  Sender: FDA-Public Use
  Company Number: US-BOEHRINGER INGELHEIM GMBH, GERMANY-2008-BP-07520RO

PATIENT
  Age: 45 Year
  Sex: Female

DRUGS (3)
  1. METHADONE HCL [Suspect]
     Indication: BONE PAIN
     Dates: start: 20070101
  2. PEG-INTRON [Suspect]
     Indication: HEPATITIS C
     Route: 058
     Dates: start: 20070312, end: 20071111
  3. RIBAVIRIN [Suspect]
     Indication: HEPATITIS C
     Route: 048
     Dates: start: 20070312, end: 20071111

REACTIONS (13)
  - ALOPECIA [None]
  - ANGER [None]
  - BONE PAIN [None]
  - DEPRESSION [None]
  - DISTURBANCE IN ATTENTION [None]
  - GASTRIC ULCER [None]
  - HYPOTHYROIDISM [None]
  - INJECTION SITE ERYTHEMA [None]
  - INSOMNIA [None]
  - MEMORY IMPAIRMENT [None]
  - PALPITATIONS [None]
  - RASH PRURITIC [None]
  - VIRAL LOAD INCREASED [None]
